FAERS Safety Report 6570839-5 (Version None)
Quarter: 2010Q1

REPORT INFORMATION
  Report Type: 
  Country: None (occurrence: None)
  Receive Date: 20100204
  Receipt Date: 20100125
  Transmission Date: 20100710
  Serious: Yes (Life-Threatening, Hospitalization)
  Sender: FDA-Public Use
  Company Number: DE-WYE-H10255409

PATIENT
  Age: 84 Year
  Sex: Female
  Weight: 63 kg

DRUGS (22)
  1. PANTOZOL [Suspect]
     Indication: PROPHYLAXIS AGAINST GASTROINTESTINAL ULCER
     Route: 048
     Dates: start: 20041001, end: 20090101
  2. PANTOZOL [Interacting]
     Route: 048
     Dates: start: 20090101
  3. RULID [Interacting]
     Indication: PNEUMONIA
     Route: 048
     Dates: start: 20090326, end: 20090406
  4. ZIENAM [Interacting]
     Indication: URINARY TRACT INFECTION
     Route: 042
     Dates: start: 20090414, end: 20090416
  5. PREDNISOLON [Interacting]
     Indication: CHRONIC OBSTRUCTIVE PULMONARY DISEASE
     Route: 048
     Dates: start: 20090326, end: 20090406
  6. SYMBICORT [Interacting]
     Indication: CHRONIC OBSTRUCTIVE PULMONARY DISEASE
     Route: 055
     Dates: start: 20080701
  7. SIMETHICONE [Concomitant]
     Indication: FLATULENCE
     Dosage: UNKNOWN
     Route: 048
  8. ACTRAPID HUMAN [Concomitant]
     Indication: DIABETES MELLITUS
     Dosage: 22 IU, FREQUENCY  NOT PROVIDED
     Route: 058
     Dates: start: 20080301
  9. CALCIUM CARBONATE [Concomitant]
     Route: 048
  10. LERCANIDIPINE [Concomitant]
     Indication: HYPERTENSION
     Route: 048
     Dates: start: 20041001
  11. CARVEDILOL [Concomitant]
     Indication: HYPERTENSION
     Route: 048
     Dates: start: 19950101
  12. LANTUS [Concomitant]
     Indication: TYPE 1 DIABETES MELLITUS
     Route: 058
     Dates: start: 20090501
  13. MOXONIDINE [Concomitant]
     Indication: HYPERTENSION
     Route: 048
     Dates: start: 20070720
  14. RAMIPRIL [Concomitant]
     Indication: HYPERTENSION
     Route: 048
     Dates: start: 20070701, end: 20090501
  15. SIMVASTATIN [Concomitant]
     Indication: HYPERLIPIDAEMIA
     Route: 048
     Dates: start: 20070701
  16. SPIRIVA [Concomitant]
     Indication: CHRONIC OBSTRUCTIVE PULMONARY DISEASE
     Route: 055
     Dates: start: 20090101
  17. SPIRONOLACTONE [Concomitant]
     Indication: HYPERTENSION
     Route: 048
     Dates: start: 20041001, end: 20090507
  18. TOREM [Concomitant]
     Indication: HYPERTENSION
     Route: 048
     Dates: start: 20080701, end: 20090407
  19. XIPAMIDE [Concomitant]
     Indication: HYPERTENSION
     Route: 048
     Dates: start: 20090326, end: 20090414
  20. ALDACTONE [Concomitant]
     Indication: HYPERTENSION
     Route: 048
     Dates: end: 20090407
  21. ASS ^CT-ARZNEIMITTEL^ [Concomitant]
     Indication: CORONARY ARTERY DISEASE
     Route: 048
     Dates: start: 19930101
  22. ROCEPHIN [Interacting]
     Indication: PNEUMONIA
     Route: 042
     Dates: start: 20090326, end: 20090406

REACTIONS (2)
  - CLOSTRIDIUM DIFFICILE COLITIS [None]
  - DRUG INTERACTION [None]
